FAERS Safety Report 10052579 (Version 2)
Quarter: 2014Q2

REPORT INFORMATION
  Report Type: Spontaneous
  Country: US (occurrence: None)
  Receive Date: 20140331
  Receipt Date: 20140404
  Transmission Date: 20141212
  Serious: Yes (Hospitalization)
  Sender: FDA-Public Use
  Company Number: UTC-046338

PATIENT
  Age: 69 Year
  Sex: Female
  Weight: 64.41 kg

DRUGS (2)
  1. REMODULIN [Suspect]
     Indication: PULMONARY ARTERIAL HYPERTENSION
     Dosage: 116.64 MCG (0.081 MCG, 1IN 1MIN), SUBCUTANEOUS
     Route: 058
     Dates: start: 20121109
  2. REVATIO [Concomitant]

REACTIONS (3)
  - Syncope [None]
  - Face injury [None]
  - Loss of consciousness [None]
